FAERS Safety Report 14970997 (Version 1)
Quarter: 2018Q2

REPORT INFORMATION
  Report Type: Spontaneous
  Country: IT (occurrence: IT)
  Receive Date: 20180604
  Receipt Date: 20180604
  Transmission Date: 20180711
  Serious: Yes (Other)
  Sender: FDA-Public Use
  Company Number: IT-MYLANLABS-2018M1036274

PATIENT
  Age: 24 Year
  Sex: Male
  Weight: 68 kg

DRUGS (1)
  1. RISPERIDONE MYLAN GENERICS 1 MG/ML SOLUZIONE ORALE [Suspect]
     Active Substance: RISPERIDONE
     Indication: PRODUCT USED FOR UNKNOWN INDICATION
     Dosage: 1 ML, QD
     Route: 048
     Dates: start: 20160625, end: 20160630

REACTIONS (1)
  - Paradoxical drug reaction [Recovered/Resolved]

NARRATIVE: CASE EVENT DATE: 20160630
